FAERS Safety Report 6163599-3 (Version None)
Quarter: 2009Q2

REPORT INFORMATION
  Report Type: 
  Country: None (occurrence: None)
  Receive Date: 20090422
  Receipt Date: 20090408
  Transmission Date: 20091009
  Serious: Yes (Other)
  Sender: FDA-Public Use
  Company Number: JP-ROCHE-626994

PATIENT
  Sex: Female

DRUGS (4)
  1. PEG-INTERFERON ALFA 2A (RO 25-8310) [Suspect]
     Indication: HEPATITIS C
     Route: 058
     Dates: start: 20080509, end: 20080509
  2. PEG-INTERFERON ALFA 2A (RO 25-8310) [Suspect]
     Route: 058
     Dates: start: 20080516, end: 20080523
  3. RIBAVIRIN [Suspect]
     Indication: HEPATITIS C
     Route: 048
     Dates: start: 20080509, end: 20080530
  4. URSO 250 [Concomitant]
     Route: 048
     Dates: start: 20080523

REACTIONS (4)
  - COUGH [None]
  - HEADACHE [None]
  - PRODUCTIVE COUGH [None]
  - PULMONARY FIBROSIS [None]
